FAERS Safety Report 20418747 (Version 1)
Quarter: 2022Q1

REPORT INFORMATION
  Report Type: Spontaneous
  Country: GB (occurrence: GB)
  Receive Date: 20220202
  Receipt Date: 20220202
  Transmission Date: 20220423
  Serious: Yes (Hospitalization)
  Sender: FDA-Public Use
  Company Number: GB-JNJFOC-20220155292

PATIENT
  Age: 90 Year
  Sex: Male

DRUGS (1)
  1. SIMPONI [Suspect]
     Active Substance: GOLIMUMAB
     Indication: Rheumatoid arthritis
     Route: 058

REACTIONS (7)
  - Pneumonia [Unknown]
  - Internal haemorrhage [Unknown]
  - Lung perforation [Unknown]
  - Pulmonary embolism [Unknown]
  - Hospitalisation [Unknown]
  - Head injury [Unknown]
  - Fall [Unknown]
